FAERS Safety Report 6157703-0 (Version None)
Quarter: 2009Q2

REPORT INFORMATION
  Report Type: 
  Country: None (occurrence: None)
  Receive Date: 20090414
  Receipt Date: 20090224
  Transmission Date: 20091009
  Serious: Yes (Other)
  Sender: FDA-Public Use
  Company Number: ENDN20090002

PATIENT
  Age: 72 Year
  Sex: Female
  Weight: 61.2356 kg

DRUGS (6)
  1. ENDODAN [Suspect]
     Indication: NEUROPATHY PERIPHERAL
     Dosage: 1 TABLET TID, PER ORAL;  1 TABLET 1-2 TIMES DAILY PRN, PER ORAL
     Route: 048
     Dates: start: 19990101, end: 20080101
  2. ENDODAN [Suspect]
     Indication: NEUROPATHY PERIPHERAL
     Dosage: 1 TABLET TID, PER ORAL;  1 TABLET 1-2 TIMES DAILY PRN, PER ORAL
     Route: 048
     Dates: start: 20080101
  3. PRILOSEC [Concomitant]
  4. TAMOXIFEN CITRATE [Concomitant]
  5. ANTIHISTAMINE [Concomitant]
  6. MULTI-VITAMIN [Concomitant]

REACTIONS (3)
  - BREAST CANCER IN SITU [None]
  - PAIN [None]
  - SPINAL COLUMN STENOSIS [None]
